FAERS Safety Report 23727231 (Version 1)
Quarter: 2024Q2

REPORT INFORMATION
  Report Type: Spontaneous
  Country: FR (occurrence: FR)
  Receive Date: 20240410
  Receipt Date: 20240410
  Transmission Date: 20240715
  Serious: Yes (Hospitalization, Disabling, Other)
  Sender: FDA-Public Use
  Company Number: FR-ORGANON-O2404FRA000902

PATIENT
  Sex: Female

DRUGS (1)
  1. IMPLANON [Suspect]
     Active Substance: ETONOGESTREL
     Indication: Contraception
     Dosage: 1 IMPLANT
     Route: 059
     Dates: start: 20140218, end: 20160613

REACTIONS (12)
  - Nerve injury [Not Recovered/Not Resolved]
  - Monoplegia [Not Recovered/Not Resolved]
  - Amyotrophy [Not Recovered/Not Resolved]
  - Peripheral nerve lesion [Not Recovered/Not Resolved]
  - Sensory level abnormal [Not Recovered/Not Resolved]
  - Pain [Recovered/Resolved]
  - Hypoaesthesia [Not Recovered/Not Resolved]
  - Skin discolouration [Unknown]
  - Scar [Unknown]
  - Device breakage [Recovered/Resolved]
  - Wrong technique in device usage process [Unknown]
  - Apraxia [Recovered/Resolved with Sequelae]

NARRATIVE: CASE EVENT DATE: 20160101
